FAERS Safety Report 17253417 (Version 1)
Quarter: 2020Q1

REPORT INFORMATION
  Report Type: Spontaneous
  Country: US (occurrence: US)
  Receive Date: 20200109
  Receipt Date: 20200109
  Transmission Date: 20200409
  Serious: Yes (Other)
  Sender: FDA-Public Use
  Company Number: US-RISING PHARMACEUTICALS, INC.-2019RIS00653

PATIENT
  Age: 59 Year
  Sex: Male

DRUGS (1)
  1. LITHIUM CARBONATE. [Suspect]
     Active Substance: LITHIUM CARBONATE
     Route: 065

REACTIONS (2)
  - End stage renal disease [Unknown]
  - Toxicity to various agents [Unknown]
